FAERS Safety Report 4410477-3 (Version None)
Quarter: 2004Q3

REPORT INFORMATION
  Report Type: 
  Country: None (occurrence: None)
  Receive Date: 20040729
  Receipt Date: 20040729
  Transmission Date: 20050211
  Serious: Yes (Disabling)
  Sender: FDA-Public Use
  Company Number: None

PATIENT
  Sex: Female
  Weight: 54.4316 kg

DRUGS (5)
  1. CRESTOR [Suspect]
     Indication: BLOOD CHOLESTEROL INCREASED
     Dosage: ONCE A DAY ORAL
     Route: 048
     Dates: start: 20040713, end: 20040727
  2. BLOKIUM [Concomitant]
  3. PLAVIX [Concomitant]
  4. COZAAR [Concomitant]
  5. NORDETTE-21 [Concomitant]

REACTIONS (2)
  - GROIN PAIN [None]
  - MYALGIA [None]
